FAERS Safety Report 7617778-6 (Version None)
Quarter: 2011Q3

REPORT INFORMATION
  Report Type: 
  Country: None (occurrence: None)
  Receive Date: 20110718
  Receipt Date: 20110520
  Transmission Date: 20111222
  Serious: Yes (Hospitalization, Other)
  Sender: FDA-Public Use
  Company Number: US-BAYER-201031706NA

PATIENT
  Age: 26 Year
  Sex: Female
  Weight: 83.9 kg

DRUGS (9)
  1. ORTHO TRI-CYCLEN [Concomitant]
     Dosage: UNK
     Dates: start: 20090901, end: 20100101
  2. ORTHO TRI-CYCLEN [Concomitant]
     Dosage: UNK
     Dates: start: 20000401, end: 20090801
  3. IBUPROFEN [Concomitant]
  4. ACIPHEX [Concomitant]
     Indication: GASTROOESOPHAGEAL REFLUX DISEASE
     Dosage: 20 MG, QD
     Route: 048
     Dates: start: 20090805
  5. ALIMENTARY TRACT AND METABOLISM [Concomitant]
     Dosage: UNK
     Dates: start: 20090829
  6. DILAUDID [Concomitant]
     Indication: PAIN
     Dosage: UNK
     Dates: start: 20090805
  7. ZOFRAN [Concomitant]
     Dosage: UNK
     Dates: start: 20090805
  8. YAZ [Suspect]
     Indication: CONTRACEPTION
     Dosage: UNK
     Route: 048
     Dates: start: 20090806, end: 20090829
  9. PROTONIX [Concomitant]
     Dosage: 40 MG, QD
     Route: 048

REACTIONS (4)
  - CHOLECYSTITIS ACUTE [None]
  - POST CHOLECYSTECTOMY SYNDROME [None]
  - CHOLELITHIASIS [None]
  - GALLBLADDER DISORDER [None]
